FAERS Safety Report 8499026 (Version 7)
Quarter: 2013Q2

REPORT INFORMATION
  Report Type: Spontaneous
  Country: BR (occurrence: BR)
  Receive Date: 20120409
  Receipt Date: 20130603
  Transmission Date: 20140414
  Serious: Yes (Other)
  Sender: FDA-Public Use
  Company Number: BR-PFIZER INC-2012057926

PATIENT
  Age: 61 Year
  Sex: Male
  Weight: 75 kg

DRUGS (10)
  1. SUTENT [Suspect]
     Indication: METASTATIC RENAL CELL CARCINOMA
     Dosage: 50 MG, ONCE DAILY, CYCLE 4 PER 2
     Route: 048
     Dates: start: 20120201
  2. SUTENT [Suspect]
     Indication: METASTASES TO LUNG
  3. VITAMIN C [Concomitant]
     Indication: SUPPLEMENTATION THERAPY
     Dosage: 200 MG, 1X/DAY
  4. COMPLEX B FORTE [Concomitant]
     Indication: SUPPLEMENTATION THERAPY
     Dosage: UNK, 1X/DAY
  5. FOLIC ACID [Concomitant]
     Indication: SUPPLEMENTATION THERAPY
     Dosage: UNK, 1X/DAY
  6. OMEPRAZOLE [Concomitant]
     Dosage: 20 MG, 1X/DAY, IN THE MORNING
  7. BROMAZEPAM [Concomitant]
     Dosage: 3 MG, 1X/DAY, AT NIGHT
  8. FLUOXETINE [Concomitant]
     Dosage: 20 MG, 1X/DAY, IN THE MORNING
  9. CALCIUM CARBONATE [Concomitant]
     Dosage: UNK
  10. NORIPURUM [Concomitant]
     Dosage: UNK

REACTIONS (13)
  - Anal haemorrhage [Recovered/Resolved]
  - Haemorrhoids [Recovering/Resolving]
  - Abdominal pain upper [Unknown]
  - Oral discomfort [Recovered/Resolved]
  - Diarrhoea [Recovered/Resolved]
  - Aphthous stomatitis [Unknown]
  - Tooth discolouration [Recovered/Resolved]
  - Decreased appetite [Not Recovered/Not Resolved]
  - Pain in extremity [Not Recovered/Not Resolved]
  - Diarrhoea [Not Recovered/Not Resolved]
  - Pallor [Unknown]
  - Yellow skin [Unknown]
  - Skin atrophy [Not Recovered/Not Resolved]
